FAERS Safety Report 19654654 (Version 6)
Quarter: 2022Q3

REPORT INFORMATION
  Report Type: Report from Study
  Country: PA (occurrence: PA)
  Receive Date: 20210804
  Receipt Date: 20220809
  Transmission Date: 20221026
  Serious: Yes (Other)
  Sender: FDA-Public Use
  Company Number: PA-SAARTEMIS-SAC202003120140

PATIENT
  Age: 50 Year
  Sex: Male
  Weight: 86 kg

DRUGS (7)
  1. TERIFLUNOMIDE [Suspect]
     Active Substance: TERIFLUNOMIDE
     Indication: Multiple sclerosis
     Dosage: 1 DF, QD
     Route: 048
     Dates: start: 20191217
  2. IBUPROFEN [Concomitant]
     Active Substance: IBUPROFEN
     Indication: Pain
     Dosage: 600 MG, Q8H
     Route: 065
  3. OMEPRAZOLE [Concomitant]
     Active Substance: OMEPRAZOLE
     Indication: Gastric disorder
     Dosage: 20 MG, Q8H
     Route: 065
  4. ERYTHROMYCIN [Concomitant]
     Active Substance: ERYTHROMYCIN
     Indication: Abscess sweat gland
     Dates: start: 20210111, end: 20210118
  5. INDAPAMIDE [Concomitant]
     Active Substance: INDAPAMIDE
     Indication: Hypertension
     Dosage: 1 DF, QD
  6. AMLODIPINE [Concomitant]
     Active Substance: AMLODIPINE BESYLATE
     Indication: Hypertension
     Dosage: 5 MG
  7. LOSARTAN [Concomitant]
     Active Substance: LOSARTAN
     Indication: Hypertension

REACTIONS (46)
  - Gait disturbance [Recovering/Resolving]
  - Seizure [Recovered/Resolved]
  - Blood urine present [Recovered/Resolved]
  - Haemorrhoidal haemorrhage [Recovering/Resolving]
  - Pain [Recovering/Resolving]
  - Dizziness [Recovering/Resolving]
  - Haematochezia [Recovered/Resolved]
  - Syncope [Recovering/Resolving]
  - Neuralgia [Recovering/Resolving]
  - Haemorrhage [Recovering/Resolving]
  - Seizure [Recovered/Resolved]
  - Abdominal pain [Recovering/Resolving]
  - Muscular weakness [Recovering/Resolving]
  - Migraine [Recovering/Resolving]
  - Hypersomnia [Not Recovered/Not Resolved]
  - Fatigue [Recovering/Resolving]
  - Urinary incontinence [Not Recovered/Not Resolved]
  - Insomnia [Not Recovered/Not Resolved]
  - General physical health deterioration [Not Recovered/Not Resolved]
  - Nausea [Not Recovered/Not Resolved]
  - Anxiety [Not Recovered/Not Resolved]
  - Abdominal pain upper [Recovering/Resolving]
  - Diarrhoea [Recovered/Resolved]
  - Paraesthesia [Recovering/Resolving]
  - Hypoaesthesia [Not Recovered/Not Resolved]
  - Condition aggravated [Not Recovered/Not Resolved]
  - Sleep disorder [Not Recovered/Not Resolved]
  - Somnolence [Not Recovered/Not Resolved]
  - Neck pain [Recovering/Resolving]
  - Condition aggravated [Recovering/Resolving]
  - Back pain [Recovering/Resolving]
  - Haemorrhoids [Recovering/Resolving]
  - Tremor [Not Recovered/Not Resolved]
  - Muscle spasms [Recovering/Resolving]
  - Pain [Recovering/Resolving]
  - Subcutaneous abscess [Not Recovered/Not Resolved]
  - Pain [Not Recovered/Not Resolved]
  - Erythema [Not Recovered/Not Resolved]
  - Induration [Not Recovered/Not Resolved]
  - Inflammation [Not Recovered/Not Resolved]
  - Illness [Unknown]
  - Asthenia [Recovered/Resolved]
  - Sleep disorder [Recovered/Resolved]
  - Discomfort [Recovered/Resolved]
  - Abdominal pain [Recovering/Resolving]
  - Diarrhoea [Recovering/Resolving]

NARRATIVE: CASE EVENT DATE: 20200101
